FAERS Safety Report 9160549 (Version 2)
Quarter: 2013Q1

REPORT INFORMATION
  Report Type: Spontaneous
  Country: CN (occurrence: None)
  Receive Date: 20130220
  Receipt Date: 20130315
  Transmission Date: 20140127
  Serious: Yes (Hospitalization)
  Sender: FDA-Public Use
  Company Number: CN-AGG-02-2013-0529

PATIENT
  Age: 44 Year
  Sex: Male
  Weight: 71 kg

DRUGS (8)
  1. TIROFIBAN HYDROCHLORIDE [Suspect]
     Indication: ACUTE MYOCARDIAL INFARCTION
     Route: 022
     Dates: start: 20121225, end: 20121225
  2. CLOPIDOGREL [Suspect]
     Indication: ACUTE MYOCARDIAL INFARCTION
  3. HEPARIN [Suspect]
     Indication: ACUTE MYOCARDIAL INFARCTION
     Dates: start: 20121225, end: 20121225
  4. HEPARIN [Suspect]
     Indication: ACUTE MYOCARDIAL INFARCTION
  5. DOPAMINE HYDROCHLORIDE [Suspect]
     Indication: ACUTE MYOCARDIAL INFARCTION
  6. RADIOGRAPHIC CONTRAST MEDIUM (UNSPECIFIED) [Suspect]
     Indication: ACUTE MYOCARDIAL INFARCTION
     Dates: start: 20121225, end: 20121225
  7. NITROGLYCERIN [Suspect]
     Indication: ACUTE MYOCARDIAL INFARCTION
     Dates: start: 20121225, end: 20121225
  8. ASPIRIN [Suspect]
     Indication: ACUTE MYOCARDIAL INFARCTION

REACTIONS (2)
  - Anaphylactic shock [None]
  - Off label use [None]
